FAERS Safety Report 8620303-4 (Version None)
Quarter: 2012Q3

REPORT INFORMATION
  Report Type: 
  Country: None (occurrence: None)
  Receive Date: 20120817
  Receipt Date: 20120817
  Transmission Date: 20120928
  Serious: Yes (Life-Threatening, Hospitalization)
  Sender: FDA-Public Use
  Company Number: None

PATIENT
  Age: 49 Year
  Sex: Female
  Weight: 68.0396 kg

DRUGS (1)
  1. LAMOTRIGINE [Suspect]
     Dosage: 25 ONCE DAILY PO
     Route: 048
     Dates: start: 20120712, end: 20120726

REACTIONS (1)
  - MENINGITIS ASEPTIC [None]
